FAERS Safety Report 6002735-6 (Version None)
Quarter: 2008Q4

REPORT INFORMATION
  Report Type: 
  Country: None (occurrence: None)
  Receive Date: 20081212
  Receipt Date: 20081202
  Transmission Date: 20090506
  Serious: Yes (Other)
  Sender: FDA-Public Use
  Company Number: ENT 2008-0196

PATIENT
  Sex: Female

DRUGS (2)
  1. COMTAN [Suspect]
     Indication: PARKINSON'S DISEASE
     Dosage: 800 MG, 4 IN 1 D, ORAL; 25/100 X 4;
     Route: 048
     Dates: start: 20060201
  2. SINEMET [Concomitant]

REACTIONS (1)
  - GLAUCOMA [None]
